FAERS Safety Report 21839440 (Version 15)
Quarter: 2024Q1

REPORT INFORMATION
  Report Type: Report from Study
  Country: US (occurrence: US)
  Receive Date: 20230109
  Receipt Date: 20240314
  Transmission Date: 20240409
  Serious: Yes (Hospitalization, Other)
  Sender: FDA-Public Use
  Company Number: US-JAZZ-2022-US-033507

PATIENT
  Age: 45 Year
  Sex: Female

DRUGS (10)
  1. XYWAV [Suspect]
     Active Substance: CALCIUM OXYBATE\MAGNESIUM OXYBATE\POTASSIUM OXYBATE\SODIUM OXYBATE
     Indication: Cataplexy
     Dosage: 3 GRAMS FOR THE 1ST DOSE AND 2.75GRAMS FOR SECOND DOSE
  2. XYWAV [Suspect]
     Active Substance: CALCIUM OXYBATE\MAGNESIUM OXYBATE\POTASSIUM OXYBATE\SODIUM OXYBATE
     Indication: Somnolence
     Dosage: 3 GRAM, BID
     Route: 048
     Dates: start: 20220410
  3. XYWAV [Suspect]
     Active Substance: CALCIUM OXYBATE\MAGNESIUM OXYBATE\POTASSIUM OXYBATE\SODIUM OXYBATE
     Indication: Hypersomnia
     Dosage: 6 GRAM AT BEDTIME AND THEN 3 GRAM 2.5 TO 4 HRS LATER
     Route: 048
  4. XYWAV [Suspect]
     Active Substance: CALCIUM OXYBATE\MAGNESIUM OXYBATE\POTASSIUM OXYBATE\SODIUM OXYBATE
     Indication: Narcolepsy
     Dosage: UNK
  5. CORLANOR [Suspect]
     Active Substance: IVABRADINE HYDROCHLORIDE
     Indication: Tachycardia
     Dosage: 7.5 MILLIGRAM
  6. CORLANOR [Suspect]
     Active Substance: IVABRADINE HYDROCHLORIDE
     Dosage: 5 MILLIGRAM
  7. WELLBUTRIN XL [Suspect]
     Active Substance: BUPROPION HYDROCHLORIDE
     Indication: Product used for unknown indication
     Dosage: 300 MILLIGRAM
     Dates: start: 20230918
  8. WELLBUTRIN XL [Suspect]
     Active Substance: BUPROPION HYDROCHLORIDE
     Dosage: 150 MILLIGRAM
  9. ADDERALL [Concomitant]
     Active Substance: AMPHETAMINE ASPARTATE\AMPHETAMINE SULFATE\DEXTROAMPHETAMINE SACCHARATE\DEXTROAMPHETAMINE SULFATE
     Indication: Product used for unknown indication
     Dosage: UNK
     Dates: start: 20220723
  10. COLLAGEN HYDROLYSATE [Concomitant]
     Indication: Product used for unknown indication
     Dosage: UNK
     Dates: start: 20230612

REACTIONS (12)
  - Surgery [Unknown]
  - Hysterectomy [Unknown]
  - Vertigo [Not Recovered/Not Resolved]
  - Hyperaesthesia teeth [Unknown]
  - Dental caries [Unknown]
  - Bronchitis [Unknown]
  - Tremor [Unknown]
  - Herpes zoster [Unknown]
  - Nausea [Unknown]
  - Palpitations [Unknown]
  - Product dose omission issue [Unknown]
  - Intentional dose omission [Unknown]

NARRATIVE: CASE EVENT DATE: 20230309
